FAERS Safety Report 11482473 (Version 1)
Quarter: 2015Q3

REPORT INFORMATION
  Report Type: Spontaneous
  Country: US (occurrence: None)
  Receive Date: 20150908
  Receipt Date: 20150908
  Transmission Date: 20151125
  Serious: Yes (Disabling)
  Sender: FDA-Public Use
  Company Number: None

PATIENT
  Age: 74 Year
  Sex: Female
  Weight: 53.52 kg

DRUGS (6)
  1. PROLIA [Suspect]
     Active Substance: DENOSUMAB
     Indication: BONE DENSITY DECREASED
     Dosage: 1 SHOT GIVEN INTO/UNDER THE SKIN
     Dates: start: 20140925, end: 20150904
  2. FISH OIL [Concomitant]
     Active Substance: FISH OIL
  3. PRESERVISION [Concomitant]
     Active Substance: MINERALS\VITAMINS
  4. CALCIUM WITH D3 [Concomitant]
  5. BIOTIN [Concomitant]
     Active Substance: BIOTIN
  6. MULTI-VIT [Concomitant]
     Active Substance: VITAMINS

REACTIONS (7)
  - Pyrexia [None]
  - Movement disorder [None]
  - Fatigue [None]
  - Insomnia [None]
  - Bone pain [None]
  - Cough [None]
  - Chills [None]

NARRATIVE: CASE EVENT DATE: 20140925
